FAERS Safety Report 8171854-0 (Version None)
Quarter: 2012Q1

REPORT INFORMATION
  Report Type: 
  Country: None (occurrence: None)
  Receive Date: 20120113
  Receipt Date: 20111026
  Transmission Date: 20120608
  Serious: Yes (Hospitalization)
  Sender: FDA-Public Use
  Company Number: 2011S1000099

PATIENT
  Age: 31 Year
  Sex: Male

DRUGS (14)
  1. MULTIVITAMIN /00097801/ [Concomitant]
  2. KRYSTEXXA [Suspect]
     Indication: GOUT
     Dosage: X1;IV ; 8 MG;X1;IV ; 8 MG;X1;IV
     Route: 042
     Dates: start: 20111007, end: 20111007
  3. KRYSTEXXA [Suspect]
     Indication: GOUT
     Dosage: X1;IV ; 8 MG;X1;IV ; 8 MG;X1;IV
     Route: 042
     Dates: start: 20111025, end: 20111025
  4. KRYSTEXXA [Suspect]
     Indication: GOUT
     Dosage: X1;IV ; 8 MG;X1;IV ; 8 MG;X1;IV
     Route: 042
     Dates: start: 20110922, end: 20110922
  5. TYLENOL (CAPLET) [Concomitant]
  6. COLCRYS [Concomitant]
  7. PERCOCET [Concomitant]
  8. BENADRYL /00945501/ [Concomitant]
  9. SOLU-MEDROL [Concomitant]
  10. ZANTAC [Concomitant]
  11. PREDNISONE TAB [Concomitant]
  12. ALLEGRA [Concomitant]
  13. ALLOPURINOL [Concomitant]
  14. NORVASC [Concomitant]

REACTIONS (2)
  - THERAPEUTIC RESPONSE DECREASED [None]
  - INFUSION RELATED REACTION [None]
